FAERS Safety Report 4947693-8 (Version None)
Quarter: 2006Q1

REPORT INFORMATION
  Report Type: 
  Country: None (occurrence: None)
  Receive Date: 20060320
  Receipt Date: 20060308
  Transmission Date: 20060701
  Serious: Yes (Other)
  Sender: FDA-Public Use
  Company Number: PHBS2006AU03844

PATIENT
  Age: 57 Year
  Sex: Female

DRUGS (4)
  1. BACLOFEN [Suspect]
     Indication: MUSCLE SPASTICITY
     Dosage: 80 MG/DAY
     Route: 048
  2. BACLOFEN [Suspect]
     Indication: MUSCLE SPASTICITY
     Dosage: 200 MCG/DAY
     Route: 037
  3. BACLOFEN [Suspect]
     Dosage: 400 MCG/DAY
     Route: 037
  4. BACLOFEN [Suspect]
     Dosage: 500 MCG/DAY
     Route: 037

REACTIONS (8)
  - ABDOMINAL DISCOMFORT [None]
  - AMNESIA [None]
  - COGNITIVE DISORDER [None]
  - GRANULOMA [None]
  - MUSCLE SPASTICITY [None]
  - NAUSEA [None]
  - SEDATION [None]
  - SOMNOLENCE [None]
